FAERS Safety Report 8895874 (Version 4)
Quarter: 2013Q3

REPORT INFORMATION
  Report Type: Spontaneous
  Country: US (occurrence: US)
  Receive Date: 20121108
  Receipt Date: 20130802
  Transmission Date: 20140515
  Serious: Yes (Other)
  Sender: FDA-Public Use
  Company Number: US-ASTRAZENECA-2012SE81648

PATIENT
  Age: 43 Year
  Sex: Male
  Weight: 63.5 kg

DRUGS (1)
  1. NEXIUM [Suspect]
     Indication: GASTROOESOPHAGEAL REFLUX DISEASE
     Route: 048

REACTIONS (11)
  - Pharyngeal neoplasm [Unknown]
  - Crying [Unknown]
  - Dyspnoea [Unknown]
  - Adverse event [Unknown]
  - Throat irritation [Unknown]
  - Mobility decreased [Unknown]
  - Aphagia [Unknown]
  - Vomiting [Unknown]
  - Malaise [Unknown]
  - Intentional drug misuse [Unknown]
  - Drug dose omission [Unknown]
